FAERS Safety Report 15580591 (Version 16)
Quarter: 2020Q2

REPORT INFORMATION
  Report Type: Spontaneous
  Country: JP (occurrence: JP)
  Receive Date: 20181102
  Receipt Date: 20200422
  Transmission Date: 20200713
  Serious: Yes (Life-Threatening, Hospitalization, Other)
  Sender: FDA-Public Use
  Company Number: JP-ASTRAZENECA-2018SF42030

PATIENT
  Age: 31369 Day
  Sex: Female
  Weight: 53 kg

DRUGS (48)
  1. LYRICA [Suspect]
     Active Substance: PREGABALIN
     Route: 048
     Dates: start: 20180214
  2. PERSANTIN [Concomitant]
     Active Substance: DIPYRIDAMOLE
     Route: 048
  3. GASTEEL [Concomitant]
     Route: 048
  4. L-ASPARTATE K [Concomitant]
     Route: 065
  5. MEMARY OD [Concomitant]
     Active Substance: MEMANTINE HYDROCHLORIDE
     Route: 048
  6. NEXIUM [Suspect]
     Active Substance: ESOMEPRAZOLE MAGNESIUM
     Dosage: 20 MG EVERY DAY, AFTER BREAKFAST
     Route: 048
     Dates: start: 20180203, end: 20180217
  7. SUCRALFATE HYDRATE [Concomitant]
     Active Substance: SUCRALFATE
     Route: 048
     Dates: end: 20190212
  8. GASTER [Concomitant]
     Active Substance: FAMOTIDINE
     Route: 048
     Dates: end: 20190217
  9. HYPOCA [Concomitant]
     Active Substance: BARNIDIPINE HYDROCHLORIDE
     Route: 048
     Dates: end: 20190212
  10. CARDENALIN [Concomitant]
     Active Substance: DOXAZOSIN MESYLATE
     Route: 048
  11. FERROUS SULFATE. [Concomitant]
     Active Substance: FERROUS SULFATE
     Route: 048
  12. FAMOTIDINE. [Concomitant]
     Active Substance: FAMOTIDINE
     Dosage: 20.0MG UNKNOWN
     Route: 048
  13. DOXAZOSIN MESILATE [Concomitant]
     Active Substance: DOXAZOSIN MESYLATE
     Dosage: 1.0MG UNKNOWN
     Route: 048
  14. QUETIAPINE. [Concomitant]
     Active Substance: QUETIAPINE
     Route: 048
     Dates: end: 20190218
  15. DIMETICONE [Concomitant]
     Active Substance: DIMETHICONE
     Route: 048
     Dates: end: 20190212
  16. URSO [Concomitant]
     Active Substance: URSODIOL
     Route: 065
  17. FERROUS CITRATE NA [Concomitant]
     Active Substance: SODIUM FERROUS CITRATE
     Route: 048
     Dates: start: 20181122
  18. BUFFERIN [Suspect]
     Active Substance: ASPIRIN
     Dosage: 81.0MG UNKNOWN
     Route: 048
  19. CELIPROLOL HYDROCHLORIDE [Concomitant]
     Active Substance: CELIPROLOL HYDROCHLORIDE
     Route: 048
  20. CIBENZOLINE SUCCINATE [Concomitant]
     Active Substance: CIFENLINE SUCCINATE
     Route: 048
  21. MAGMITT [Concomitant]
     Active Substance: MAGNESIUM OXIDE
     Route: 048
  22. TAKECAB [Concomitant]
     Active Substance: VONOPRAZAN FUMARATE
     Route: 048
  23. LEVOFLOXACIN OD [Concomitant]
     Active Substance: LEVOFLOXACIN
     Route: 048
  24. DIAZEPAM. [Suspect]
     Active Substance: DIAZEPAM
     Route: 048
     Dates: start: 20150606
  25. CELIPROLOL HYDROCHLORIDE [Concomitant]
     Active Substance: CELIPROLOL HYDROCHLORIDE
     Route: 065
  26. PICOSULFATE NA [Concomitant]
     Active Substance: SODIUM PICOSULFATE
     Dosage: 10 DROPS, ADJUSTED AS NEEDED/DAY
     Route: 048
  27. LUNESTA [Concomitant]
     Active Substance: ESZOPICLONE
  28. LIXIANA [Suspect]
     Active Substance: EDOXABAN TOSYLATE
     Route: 048
     Dates: start: 20160617
  29. URSO [Concomitant]
     Active Substance: URSODIOL
     Route: 048
  30. AZILVA [Concomitant]
     Active Substance: AZILSARTAN KAMEDOXOMIL
     Route: 048
  31. ACETAMINOPHEN. [Concomitant]
     Active Substance: ACETAMINOPHEN
     Route: 048
  32. RISPERIDONE. [Concomitant]
     Active Substance: RISPERIDONE
     Route: 048
  33. MAGCOROL P [Concomitant]
     Active Substance: MAGNESIUM CITRATE
     Dosage: 50.0G UNKNOWN
     Route: 065
  34. OPALMON [Concomitant]
     Active Substance: LIMAPROST
     Route: 048
  35. NEUROTROPIN [Concomitant]
     Active Substance: NEUROTROPIN
     Route: 048
  36. LIMAPROST ALFADEX [Concomitant]
     Active Substance: LIMAPROST
     Route: 048
  37. SENNA LEAF/SENNA POD [Concomitant]
     Route: 048
     Dates: end: 20190212
  38. METOCLOPRAMIDE. [Concomitant]
     Active Substance: METOCLOPRAMIDE
     Route: 048
  39. QUETIAPINE. [Concomitant]
     Active Substance: QUETIAPINE
     Route: 048
     Dates: end: 20190218
  40. TRAZODONE HYDROCHLORIDE. [Concomitant]
     Active Substance: TRAZODONE HYDROCHLORIDE
     Route: 065
  41. MOVIPREP [Concomitant]
     Active Substance: ASCORBIC ACID\POLYETHYLENE GLYCOL 3350\POTASSIUM CHLORIDE\SODIUM ASCORBATE\SODIUM CHLORIDE\SODIUM SULFATE
     Dosage: 212.0G UNKNOWN
     Route: 065
  42. LAXOBERON [Concomitant]
     Active Substance: SODIUM PICOSULFATE
     Route: 065
  43. ALPRAZOLAM. [Suspect]
     Active Substance: ALPRAZOLAM
     Route: 048
     Dates: start: 20150606
  44. PRIMPERAN [Concomitant]
     Active Substance: METOCLOPRAMIDE HYDROCHLORIDE
     Route: 048
     Dates: end: 20190212
  45. DIPYRIDAMOLE. [Concomitant]
     Active Substance: DIPYRIDAMOLE
     Route: 065
  46. MAGNESIUM OXIDE. [Concomitant]
     Active Substance: MAGNESIUM OXIDE
     Route: 065
  47. AMLODIPINE [Concomitant]
     Active Substance: AMLODIPINE BESYLATE
     Route: 048
  48. EBRANTIL [Concomitant]
     Active Substance: URAPIDIL
     Route: 048

REACTIONS (34)
  - Pneumonia aspiration [Recovering/Resolving]
  - Fall [Recovering/Resolving]
  - Urinary tract infection [Recovering/Resolving]
  - Constipation [Recovering/Resolving]
  - Haemorrhage [Unknown]
  - Contusion [Recovering/Resolving]
  - Sinus arrest [Recovering/Resolving]
  - Urinary retention [Recovering/Resolving]
  - Hypokalaemia [Recovering/Resolving]
  - Occult blood [Not Recovered/Not Resolved]
  - Iron deficiency anaemia [Recovering/Resolving]
  - Aortic aneurysm [Recovering/Resolving]
  - Vomiting [Recovering/Resolving]
  - Dizziness [Recovered/Resolved]
  - Internal haemorrhage [Recovered/Resolved]
  - Psychogenic seizure [Recovered/Resolved]
  - Tachycardia [Recovering/Resolving]
  - Haemorrhage subcutaneous [Recovered/Resolved]
  - Suicide attempt [Unknown]
  - Haemorrhage subcutaneous [Recovering/Resolving]
  - Depression [Unknown]
  - Cognitive disorder [Unknown]
  - Eczema [Recovered/Resolved]
  - Suicidal ideation [Unknown]
  - Asthenia [Recovering/Resolving]
  - Blood urine present [Recovering/Resolving]
  - Somnolence [Recovering/Resolving]
  - Bronchitis [Recovered/Resolved]
  - Subcutaneous haematoma [Recovered/Resolved]
  - Nasopharyngitis [Recovered/Resolved]
  - Hyponatraemia [Recovering/Resolving]
  - Large intestine polyp [Not Recovered/Not Resolved]
  - Abdominal pain upper [Recovering/Resolving]
  - Nausea [Recovering/Resolving]

NARRATIVE: CASE EVENT DATE: 20180214
